FAERS Safety Report 5782754-5 (Version None)
Quarter: 2008Q2

REPORT INFORMATION
  Report Type: 
  Country: None (occurrence: None)
  Receive Date: 20080619
  Receipt Date: 20080606
  Transmission Date: 20081010
  Serious: Yes (Death, Hospitalization)
  Sender: FDA-Public Use
  Company Number: 2007001696

PATIENT
  Age: 58 Year
  Sex: Female
  Weight: 59 kg

DRUGS (4)
  1. ERLOTINIB (TABLET) [Suspect]
     Indication: LEIOMYOSARCOMA
     Dosage: 150 MG (150 MG, QD), ORAL
     Route: 048
     Dates: start: 20070808
  2. TOPOTECAN (TOPOTECAN) [Suspect]
     Indication: COLON CANCER METASTATIC
     Dosage: 1.6 MG (1.61 MG), INTRAVENOUS
     Route: 042
     Dates: start: 20070808
  3. TRIAMTERENE (TRIAMTERENE) [Concomitant]
  4. LEVOFLOXACIN [Concomitant]

REACTIONS (8)
  - BODY TEMPERATURE INCREASED [None]
  - CATHETER SITE DISCHARGE [None]
  - ERYTHEMA [None]
  - HYPOTENSION [None]
  - IRRITABILITY [None]
  - NEUTROPENIA [None]
  - PERICARDIAL EFFUSION [None]
  - THROMBOCYTOPENIA [None]
